FAERS Safety Report 9434981 (Version 1)
Quarter: 2013Q3

REPORT INFORMATION
  Report Type: Spontaneous
  Country: TR (occurrence: None)
  Receive Date: 20130730
  Receipt Date: 20130730
  Transmission Date: 20140515
  Serious: Yes (Hospitalization)
  Sender: FDA-Public Use
  Company Number: SYM-2013-06954

PATIENT
  Age: 50 Year
  Sex: Female

DRUGS (6)
  1. FLUOROURACIL (FLUOROURACIL) (FLUOROURACIL) [Suspect]
     Indication: ADENOCARCINOMA OF COLON
  2. CODEINE SALT [Suspect]
     Indication: ANALGESIC THERAPY
     Route: 048
  3. ONDANSETRON HYDROCHLORIDE [Suspect]
     Indication: PROPHYLAXIS OF NAUSEA AND VOMITING
     Route: 042
  4. OMEPRAZOLE [Suspect]
     Indication: PROPHYLAXIS AGAINST GASTROINTESTINAL ULCER
  5. PIROXICAM [Suspect]
     Indication: ANALGESIC THERAPY
     Route: 048
  6. IRINOTECAN [Suspect]
     Indication: ADENOCARCINOMA OF COLON

REACTIONS (1)
  - Pancreatitis acute [None]
